FAERS Safety Report 6466814-1 (Version None)
Quarter: 2009Q4

REPORT INFORMATION
  Report Type: 
  Country: None (occurrence: None)
  Receive Date: 20091202
  Receipt Date: 20091117
  Transmission Date: 20100525
  Serious: Yes (Hospitalization)
  Sender: FDA-Public Use
  Company Number: US-ELI_LILLY_AND_COMPANY-US200911004457

PATIENT
  Sex: Female

DRUGS (1)
  1. HUMALOG [Suspect]

REACTIONS (16)
  - BALANCE DISORDER [None]
  - BLOOD GLUCOSE INCREASED [None]
  - CONTUSION [None]
  - FACE INJURY [None]
  - FALL [None]
  - HUMERUS FRACTURE [None]
  - HYPOACUSIS [None]
  - MALAISE [None]
  - PAIN [None]
  - VISION BLURRED [None]
  - VISUAL IMPAIRMENT [None]
  - WOUND [None]
  - WOUND COMPLICATION [None]
  - WOUND INFECTION [None]
  - WRIST FRACTURE [None]
  - WRONG TECHNIQUE IN DRUG USAGE PROCESS [None]
